FAERS Safety Report 9761534 (Version 1)
Quarter: 2013Q4

REPORT INFORMATION
  Report Type: Spontaneous
  Country: US (occurrence: US)
  Receive Date: 20131216
  Receipt Date: 20131216
  Transmission Date: 20140711
  Serious: No
  Sender: FDA-Public Use
  Company Number: US-ABBVIE-13P-163-1035130-00

PATIENT
  Age: 56 Year
  Sex: Female

DRUGS (2)
  1. PROGESTERONE [Suspect]
     Indication: INFERTILITY
     Dosage: 00591-3964-01
     Dates: start: 2010, end: 20121225
  2. PROGESTERONE [Suspect]
     Dates: start: 20121226, end: 20130105

REACTIONS (3)
  - Headache [Not Recovered/Not Resolved]
  - Abdominal pain upper [Not Recovered/Not Resolved]
  - Dysgeusia [Not Recovered/Not Resolved]
